FAERS Safety Report 7741126 (Version 20)
Quarter: 2014Q2

REPORT INFORMATION
  Report Type: Spontaneous
  Country: US (occurrence: US)
  Receive Date: 20101228
  Receipt Date: 20140623
  Transmission Date: 20141212
  Serious: Yes (Death, Hospitalization, Other)
  Sender: FDA-Public Use
  Company Number: PHEH2010US03875

PATIENT
  Age: 62 Year
  Sex: Male

DRUGS (20)
  1. AREDIA [Suspect]
     Indication: OSTEOPOROSIS
     Dosage: 90 MG,
     Route: 041
  2. ZOMETA [Suspect]
     Indication: PROSTATE CANCER METASTATIC
     Dosage: 4 MG,
     Route: 041
  3. ZOMETA [Suspect]
     Indication: METASTASES TO BONE
  4. CASODEX [Concomitant]
  5. NORMAL SALINE [Concomitant]
  6. TAXOTERE [Concomitant]
     Dosage: 68 MG IV OVER AN HOUR
     Route: 042
  7. ALOXI [Concomitant]
     Dosage: 25 MG
     Route: 042
  8. DECADRON                                /CAN/ [Concomitant]
     Dosage: 4 MG
     Route: 042
  9. PROCRIT                            /00909301/ [Concomitant]
     Dosage: 40000 U
  10. CELEBREX [Concomitant]
  11. LOTREL [Concomitant]
  12. ALLOPURINOL [Concomitant]
  13. MORPHINE ^ADRIAN^ [Concomitant]
     Route: 065
  14. ROXICODONE [Concomitant]
     Dosage: 15 MG
  15. ZOLOFT (SERTRALINE) [Concomitant]
     Dosage: 50 MG , DAILY
     Route: 048
  16. PLAVIX [Concomitant]
     Dosage: 75 MG, QD
     Route: 048
  17. INDOMETHACIN [Concomitant]
  18. LEVAQUIN [Concomitant]
     Dosage: 500 MG, QD
  19. NOVANTRONE [Concomitant]
  20. PREDNISONE [Concomitant]

REACTIONS (116)
  - Death [Fatal]
  - Osteonecrosis of jaw [Unknown]
  - Pain [Unknown]
  - Injury [Unknown]
  - Osteomyelitis chronic [Unknown]
  - Cellulitis [Unknown]
  - Exposed bone in jaw [Unknown]
  - Primary sequestrum [Unknown]
  - Osteitis [Unknown]
  - Swelling [Unknown]
  - Osteosclerosis [Unknown]
  - Osteomyelitis acute [Unknown]
  - Actinomycosis [Unknown]
  - Abscess jaw [Unknown]
  - Pain in jaw [Unknown]
  - Mass [Unknown]
  - Bone lesion [Unknown]
  - Excessive granulation tissue [Unknown]
  - Oral discharge [Unknown]
  - Tooth infection [Unknown]
  - Scar [Unknown]
  - Bone swelling [Unknown]
  - Wound secretion [Unknown]
  - Erythema [Unknown]
  - Purulence [Unknown]
  - Toothache [Unknown]
  - Secretion discharge [Unknown]
  - Spinal osteoarthritis [Unknown]
  - Lumbar spinal stenosis [Unknown]
  - Back pain [Unknown]
  - Pain in extremity [Unknown]
  - Gouty arthritis [Unknown]
  - Metastases to bone [Unknown]
  - Metastases to spine [Unknown]
  - Transient ischaemic attack [Unknown]
  - Carotid artery stenosis [Unknown]
  - Carotid arterial embolus [Unknown]
  - Mental status changes [Unknown]
  - Hemiparesis [Unknown]
  - Oedema peripheral [Unknown]
  - Brain oedema [Unknown]
  - Renal atrophy [Unknown]
  - Hydronephrosis [Unknown]
  - Haematuria [Unknown]
  - Skin cancer [Unknown]
  - Second primary malignancy [Unknown]
  - Metastases to lymph nodes [Unknown]
  - Fluid retention [Unknown]
  - Depression [Unknown]
  - Thrombocytopenia [Unknown]
  - Metastases to central nervous system [Unknown]
  - Neoplasm progression [Unknown]
  - Anaemia [Unknown]
  - Dysphagia [Unknown]
  - Urinary tract infection [Unknown]
  - Confusional state [Unknown]
  - Restlessness [Unknown]
  - Insomnia [Unknown]
  - Dry mouth [Unknown]
  - Obesity [Unknown]
  - Ecchymosis [Unknown]
  - Paraesthesia [Unknown]
  - Myalgia [Unknown]
  - Facet joint syndrome [Unknown]
  - Anxiety [Unknown]
  - Exostosis [Unknown]
  - Osteoarthritis [Unknown]
  - Enthesopathy [Unknown]
  - Abdominal lymphadenopathy [Unknown]
  - Lumbar radiculopathy [Unknown]
  - Claustrophobia [Unknown]
  - Deafness [Unknown]
  - Gastrooesophageal reflux disease [Unknown]
  - Nephrolithiasis [Unknown]
  - Skin ulcer [Unknown]
  - Abdominal distension [Unknown]
  - Arthralgia [Unknown]
  - Constipation [Unknown]
  - Abdominal pain [Unknown]
  - Lethargy [Unknown]
  - Contusion [Unknown]
  - Osteomyelitis [Unknown]
  - Hypoaesthesia [Unknown]
  - Musculoskeletal stiffness [Unknown]
  - Bradycardia [Unknown]
  - Oedema [Unknown]
  - Lymphadenitis [Unknown]
  - Dermal cyst [Unknown]
  - Lymphadenopathy [Unknown]
  - Hyperglycaemia [Unknown]
  - Hyperlipidaemia [Unknown]
  - Hepatic function abnormal [Unknown]
  - Arteriosclerosis [Unknown]
  - Sinus congestion [Unknown]
  - Oropharyngeal pain [Unknown]
  - Ear pain [Unknown]
  - Nausea [Unknown]
  - Decreased appetite [Unknown]
  - Tremor [Unknown]
  - Hyperhidrosis [Unknown]
  - Agitation [Unknown]
  - Delirium [Unknown]
  - Disturbance in attention [Unknown]
  - Sleep disorder [Unknown]
  - Personality disorder [Unknown]
  - Hyporeflexia [Unknown]
  - Intervertebral disc protrusion [Unknown]
  - Skin abrasion [Unknown]
  - Visual acuity reduced [Unknown]
  - Diarrhoea [Unknown]
  - Bone pain [Unknown]
  - Asthenia [Unknown]
  - Muscle spasms [Unknown]
  - Musculoskeletal pain [Unknown]
  - Headache [Unknown]
  - Irritability [Unknown]
